FAERS Safety Report 12951874 (Version 1)
Quarter: 2016Q4

REPORT INFORMATION
  Report Type: Report from Study
  Country: BR (occurrence: BR)
  Receive Date: 20161117
  Receipt Date: 20161117
  Transmission Date: 20170207
  Serious: Yes (Other)
  Sender: FDA-Public Use
  Company Number: BR-SA-2016SA189034

PATIENT
  Age: 36 Year
  Sex: Female
  Weight: 59 kg

DRUGS (1)
  1. LEMTRADA [Suspect]
     Active Substance: ALEMTUZUMAB
     Indication: MULTIPLE SCLEROSIS
     Route: 042
     Dates: start: 20160702

REACTIONS (4)
  - Oral herpes [Not Recovered/Not Resolved]
  - Vaginal discharge [Recovering/Resolving]
  - Therapeutic response decreased [Unknown]
  - Immune system disorder [Not Recovered/Not Resolved]

NARRATIVE: CASE EVENT DATE: 201609
